FAERS Safety Report 9827725 (Version 1)
Quarter: 2014Q1

REPORT INFORMATION
  Report Type: Spontaneous
  Country: US (occurrence: US)
  Receive Date: 20140117
  Receipt Date: 20140117
  Transmission Date: 20141002
  Serious: Yes (Hospitalization)
  Sender: FDA-Public Use
  Company Number: US-009507513-1401USA007083

PATIENT
  Sex: Male

DRUGS (1)
  1. MIRALAX [Suspect]
     Indication: CONSTIPATION

REACTIONS (4)
  - Renal stone removal [Unknown]
  - Nephrolithiasis [Unknown]
  - Off label use [Unknown]
  - Incorrect drug administration duration [Unknown]
